FAERS Safety Report 7676960-2 (Version None)
Quarter: 2011Q3

REPORT INFORMATION
  Report Type: 
  Country: None (occurrence: None)
  Receive Date: 20110811
  Receipt Date: 20110809
  Transmission Date: 20111222
  Serious: Yes (Death, Other)
  Sender: FDA-Public Use
  Company Number: PHHY2010CA24326

PATIENT
  Sex: Female

DRUGS (2)
  1. EXJADE [Suspect]
     Indication: MYELODYSPLASTIC SYNDROME
     Dosage: 1250 MG, QD
     Route: 048
  2. EXJADE [Suspect]
     Dosage: 1500 MG, QD
     Route: 048
     Dates: start: 20090201

REACTIONS (6)
  - DEATH [None]
  - AMNESIA [None]
  - FATIGUE [None]
  - HYPERSOMNIA [None]
  - BLOOD IRON INCREASED [None]
  - URINARY TRACT INFECTION [None]
